FAERS Safety Report 5931398-0 (Version None)
Quarter: 2008Q4

REPORT INFORMATION
  Report Type: 
  Country: None (occurrence: None)
  Receive Date: 20081027
  Receipt Date: 20081015
  Transmission Date: 20090506
  Serious: Yes (Hospitalization)
  Sender: FDA-Public Use
  Company Number: JP-ROCHE-592389

PATIENT
  Age: 61 Year
  Sex: Female

DRUGS (7)
  1. CAPECITABINE [Suspect]
     Indication: COLON CANCER
     Dosage: DRUG NAME REPORTED AS: XELODA 300
     Route: 048
     Dates: start: 20080829, end: 20080911
  2. ELPLAT [Suspect]
     Indication: COLON CANCER
     Route: 041
     Dates: start: 20080130, end: 20080807
  3. FLUOROURACIL [Suspect]
     Indication: COLON CANCER
     Dosage: ROUTE: INTRAVENOUS BOLUS
     Route: 050
     Dates: start: 20080130, end: 20080807
  4. FLUOROURACIL [Suspect]
     Dosage: ROUTE: INTRAVENOUS DRIP.
     Route: 050
     Dates: start: 20080130, end: 20080801
  5. LEUCOVORIN CALCIUM [Suspect]
     Indication: COLON CANCER
     Route: 041
     Dates: start: 20080130, end: 20080801
  6. RABEPRAZOLE SODIUM [Concomitant]
     Route: 048
  7. MUCOSTA [Concomitant]
     Dosage: FORMULATION: ORAL FORMULATION (NOT OTHERWISE SPECIFIED).
     Route: 048

REACTIONS (1)
  - DUODENAL ULCER PERFORATION [None]
